FAERS Safety Report 4684288-8 (Version None)
Quarter: 2005Q2

REPORT INFORMATION
  Report Type: 
  Country: None (occurrence: None)
  Receive Date: 20050531
  Receipt Date: 20041115
  Transmission Date: 20051028
  Serious: Yes (Other)
  Sender: FDA-Public Use
  Company Number: USA040979526

PATIENT
  Age: 48 Year
  Sex: Female
  Weight: 120 kg

DRUGS (3)
  1. ZYPREXA [Suspect]
     Indication: BIPOLAR I DISORDER
     Dosage: 2.5 MG/1 DAY
     Dates: start: 20040309, end: 20040501
  2. BUSPAR [Concomitant]
  3. PROZAC [Concomitant]

REACTIONS (2)
  - DIABETES MELLITUS [None]
  - WEIGHT DECREASED [None]
